APPROVED DRUG PRODUCT: DEXAIR
Active Ingredient: DEXAMETHASONE SODIUM PHOSPHATE
Strength: EQ 0.05% PHOSPHATE
Dosage Form/Route: OINTMENT;OPHTHALMIC
Application: A088071 | Product #001
Applicant: PHARMAFAIR INC
Approved: Dec 28, 1982 | RLD: No | RS: No | Type: DISCN